FAERS Safety Report 24074967 (Version 1)
Quarter: 2024Q3

REPORT INFORMATION
  Report Type: Spontaneous
  Country: HR (occurrence: HR)
  Receive Date: 20240710
  Receipt Date: 20240710
  Transmission Date: 20241016
  Serious: No
  Sender: PIERRE FABRE MEDICAMENT
  Company Number: HR-PFM-2023-06682

PATIENT
  Age: 31 Year
  Sex: Female

DRUGS (7)
  1. PROPRANOLOL [Suspect]
     Active Substance: PROPRANOLOL HYDROCHLORIDE
     Indication: Neuropathy peripheral
     Dosage: 40 MG, BID (2/DAY)
     Route: 065
  2. ERENUMAB [Concomitant]
     Active Substance: ERENUMAB
     Indication: Neuropathy peripheral
     Dosage: 140 MG, MONTHLY
     Route: 058
  3. METOPROLOL [Concomitant]
     Active Substance: METOPROLOL
     Indication: Prophylaxis
     Dosage: 50 MG, QD (1/DAY)
     Route: 065
  4. RIZATRIPTAN [Concomitant]
     Active Substance: RIZATRIPTAN
     Indication: Headache
     Dosage: UNK
     Route: 065
  5. DEXKETOPROFEN [Concomitant]
     Active Substance: DEXKETOPROFEN
     Indication: Headache
     Dosage: UNK
     Route: 065
  6. ZOLMITRIPTAN [Concomitant]
     Active Substance: ZOLMITRIPTAN
     Indication: Headache
     Dosage: UNK
     Route: 065
  7. ELETRIPTAN [Concomitant]
     Active Substance: ELETRIPTAN
     Indication: Headache
     Dosage: UNK
     Route: 065

REACTIONS (5)
  - Headache [Unknown]
  - Adverse event [Unknown]
  - Product use issue [Unknown]
  - Product use in unapproved indication [Unknown]
  - Off label use [Unknown]
